FAERS Safety Report 4972507-X (Version None)
Quarter: 2006Q2

REPORT INFORMATION
  Report Type: 
  Country: None (occurrence: None)
  Receive Date: 20060413
  Receipt Date: 20051123
  Transmission Date: 20061013
  Serious: Yes (Hospitalization, Disabling)
  Sender: FDA-Public Use
  Company Number: US-MERCK-0511USA04255

PATIENT
  Age: 65 Year
  Sex: Male
  Weight: 77 kg

DRUGS (12)
  1. VIOXX [Suspect]
     Indication: ARTHRITIS
     Route: 048
     Dates: end: 20040801
  2. LIPITOR [Concomitant]
     Route: 065
  3. NEXIUM [Concomitant]
     Route: 065
  4. ASPIRIN [Concomitant]
     Route: 065
  5. PRILOSEC [Concomitant]
     Route: 065
  6. GLYBURIDE [Concomitant]
     Route: 065
  7. MONOPRIL [Concomitant]
     Route: 065
  8. LANOXIN [Concomitant]
     Route: 065
  9. GLUCOPHAGE [Concomitant]
     Route: 065
  10. ECOTRIN [Concomitant]
     Route: 065
  11. GLUCOVANCE [Concomitant]
     Route: 065
  12. NIASPAN [Concomitant]
     Route: 065

REACTIONS (16)
  - ANXIETY [None]
  - ARTHRALGIA [None]
  - CARDIAC DISORDER [None]
  - CAROTID ARTERY DISEASE [None]
  - CHEST DISCOMFORT [None]
  - CHEST PAIN [None]
  - COLONIC POLYP [None]
  - DIABETES MELLITUS [None]
  - DYSPNOEA [None]
  - GASTRIC POLYPS [None]
  - HYPERTENSION [None]
  - MUSCULOSKELETAL PAIN [None]
  - MYOCARDIAL INFARCTION [None]
  - MYOCARDIAL ISCHAEMIA [None]
  - NEPHROLITHIASIS [None]
  - OESOPHAGEAL STENOSIS [None]
